FAERS Safety Report 15564166 (Version 1)
Quarter: 2018Q4

REPORT INFORMATION
  Report Type: Spontaneous
  Country: US (occurrence: US)
  Receive Date: 20181030
  Receipt Date: 20181030
  Transmission Date: 20190205
  Serious: Yes (Other)
  Sender: FDA-Public Use
  Company Number: US-CONCORDIA PHARMACEUTICALS INC.-GSH201810-003817

PATIENT

DRUGS (3)
  1. METHOTREXATE. [Suspect]
     Active Substance: METHOTREXATE
     Route: 065
     Dates: start: 2000, end: 2017
  2. XELJANZ XR [Concomitant]
     Active Substance: TOFACITINIB CITRATE
  3. PLAQUENIL [Suspect]
     Active Substance: HYDROXYCHLOROQUINE SULFATE
     Route: 065
     Dates: start: 2005, end: 2017

REACTIONS (3)
  - Pulmonary toxicity [Unknown]
  - Rheumatoid arthritis [Unknown]
  - Drug ineffective [Unknown]
